FAERS Safety Report 7576276-9 (Version None)
Quarter: 2011Q2

REPORT INFORMATION
  Report Type: 
  Country: None (occurrence: None)
  Receive Date: 20110628
  Receipt Date: 20110131
  Transmission Date: 20111010
  Serious: Yes (Hospitalization, Other)
  Sender: FDA-Public Use
  Company Number: US-BAYER-201034598NA

PATIENT
  Age: 44 Year
  Sex: Female
  Weight: 95.238 kg

DRUGS (29)
  1. METROGEL [Concomitant]
     Indication: PRODUCT USED FOR UNKNOWN INDICATION
  2. CLEOCIN HYDROCHLORIDE [Concomitant]
     Indication: PRODUCT USED FOR UNKNOWN INDICATION
  3. WELLBUTRIN [Concomitant]
     Indication: PRODUCT USED FOR UNKNOWN INDICATION
     Dosage: UNK UNK, QD
     Route: 048
  4. MACROBID [Concomitant]
     Indication: PRODUCT USED FOR UNKNOWN INDICATION
  5. EPIPEN [Concomitant]
     Indication: PRODUCT USED FOR UNKNOWN INDICATION
     Dosage: UNK UNK, PRN
     Route: 030
  6. CELEBREX [Concomitant]
     Indication: BACK PAIN
     Dosage: UNK
     Dates: start: 20050101
  7. YASMIN [Suspect]
     Indication: DYSMENORRHOEA
     Dosage: UNK
     Route: 048
     Dates: start: 20010101, end: 20070101
  8. YASMIN [Suspect]
     Indication: CONTRACEPTION
  9. DIFLUCAN [Concomitant]
     Indication: PRODUCT USED FOR UNKNOWN INDICATION
  10. PREDNISONE [Concomitant]
     Indication: PRODUCT USED FOR UNKNOWN INDICATION
  11. EPINEPHRINE [Concomitant]
     Indication: PRODUCT USED FOR UNKNOWN INDICATION
  12. ZOLOFT [Concomitant]
     Indication: ANXIETY
     Dosage: 1 DF, QD
     Route: 048
     Dates: start: 19990101
  13. DIOVAN [Concomitant]
     Indication: HYPERTENSION
     Dosage: UNK
     Dates: start: 20000101
  14. LEVOXYL [Concomitant]
     Indication: PRODUCT USED FOR UNKNOWN INDICATION
     Dosage: UNK UNK, QD
     Route: 048
  15. ANAPROX [Concomitant]
     Indication: PRODUCT USED FOR UNKNOWN INDICATION
  16. CLARITIN [Concomitant]
     Indication: PRODUCT USED FOR UNKNOWN INDICATION
  17. SOLU-MEDROL [Concomitant]
     Indication: PRODUCT USED FOR UNKNOWN INDICATION
  18. LEVOTHYROXINE SODIUM [Concomitant]
     Dosage: UNK
     Dates: start: 19900101
  19. YAZ [Suspect]
     Indication: DYSMENORRHOEA
     Route: 048
  20. MAXZIDE [Concomitant]
     Indication: PRODUCT USED FOR UNKNOWN INDICATION
  21. BENADRYL [Concomitant]
     Indication: PRODUCT USED FOR UNKNOWN INDICATION
     Dosage: 50 MG, HS
     Route: 048
  22. CELEBREX [Concomitant]
     Dosage: UNK
     Dates: start: 20000101
  23. SOMA [Concomitant]
     Indication: PRODUCT USED FOR UNKNOWN INDICATION
  24. DIOVAN HCT [Concomitant]
     Indication: PRODUCT USED FOR UNKNOWN INDICATION
     Dosage: UNK UNK, QD
     Route: 048
  25. WELLBUTRIN SR [Concomitant]
     Indication: PRODUCT USED FOR UNKNOWN INDICATION
  26. TERAZOL 1 [Concomitant]
     Indication: PRODUCT USED FOR UNKNOWN INDICATION
  27. NSAID'S [Concomitant]
  28. LAVOXIL [Concomitant]
     Indication: THYROID DISORDER
     Dosage: UNK
     Dates: start: 20000101
  29. XANAX [Concomitant]
     Indication: ANXIETY
     Dosage: UNK UNK, TID
     Route: 048
     Dates: start: 19990101

REACTIONS (4)
  - CHOLELITHIASIS [None]
  - CHOLECYSTITIS CHRONIC [None]
  - DYSPEPSIA [None]
  - GALLBLADDER DISORDER [None]
